FAERS Safety Report 17499928 (Version 4)
Quarter: 2020Q3

REPORT INFORMATION
  Report Type: Spontaneous
  Country: AU (occurrence: AU)
  Receive Date: 20200305
  Receipt Date: 20200706
  Transmission Date: 20201102
  Serious: Yes (Disabling, Other)
  Sender: FDA-Public Use
  Company Number: AU-ALVOGEN-2020-ALVOGEN-107768

PATIENT
  Age: 592 Month
  Sex: Female

DRUGS (13)
  1. MAGNESIUM [Concomitant]
     Active Substance: MAGNESIUM
     Indication: PRODUCT USED FOR UNKNOWN INDICATION
     Dates: start: 2010
  2. TENORMIN [Suspect]
     Active Substance: ATENOLOL
     Indication: PRODUCT USED FOR UNKNOWN INDICATION
     Dosage: (BATCH NUMBERS: 60031312 AND 60035257) (EXPIRATION DATES: FEB?2021 AND DEC?2021)
     Route: 048
     Dates: start: 201912, end: 20200202
  3. TENORMIN [Suspect]
     Active Substance: ATENOLOL
     Indication: PRODUCT USED FOR UNKNOWN INDICATION
     Route: 048
  4. TENORMIN [Suspect]
     Active Substance: ATENOLOL
     Indication: PRODUCT USED FOR UNKNOWN INDICATION
     Dosage: (BATCH NUMBERS: 60031312 AND 60035257) (EXPIRATION DATES: FEB?2021 AND DEC?2021)
     Route: 048
     Dates: start: 201912, end: 20200202
  5. COQ10 [Concomitant]
     Active Substance: UBIDECARENONE
     Indication: PRODUCT USED FOR UNKNOWN INDICATION
     Dates: start: 2010
  6. TENORMIN [Suspect]
     Active Substance: ATENOLOL
     Indication: PRODUCT USED FOR UNKNOWN INDICATION
     Dosage: (BATCH NUMBERS: 60031312 AND 60035257) (EXPIRATION DATES: FEB?2021 AND DEC?2021)
     Route: 048
     Dates: start: 201912, end: 20200202
  7. TENORMIN [Suspect]
     Active Substance: ATENOLOL
     Indication: PRODUCT USED FOR UNKNOWN INDICATION
     Dosage: (BATCH NUMBER(S) 60031312 AND 60035257) (EXPIRATION DATE(S) FEB?2021 AND DEC?2021)
     Route: 048
     Dates: start: 201912, end: 20200202
  8. TENORMIN [Suspect]
     Active Substance: ATENOLOL
     Indication: PRODUCT USED FOR UNKNOWN INDICATION
     Dosage: (BATCH NUMBERS: 60031312 AND 60035257) (EXPIRATION DATES: FEB?2021 AND DEC?2021)
     Route: 048
     Dates: start: 201912, end: 20200202
  9. TENORMIN [Suspect]
     Active Substance: ATENOLOL
     Indication: PRODUCT USED FOR UNKNOWN INDICATION
     Route: 048
     Dates: start: 201912
  10. VITAMIN K2 [Concomitant]
     Active Substance: MENAQUINONE 6
     Indication: PRODUCT USED FOR UNKNOWN INDICATION
     Dates: start: 2010
  11. TENORMIN [Suspect]
     Active Substance: ATENOLOL
     Indication: PRODUCT USED FOR UNKNOWN INDICATION
     Dosage: (BATCH NUMBER(S) 60031312 AND 60035257) (EXPIRATION DATE(S) FEB?2021 AND DEC?2021)
     Route: 048
     Dates: start: 201912, end: 20200202
  12. VITAMIN D3 [Concomitant]
     Active Substance: CHOLECALCIFEROL
     Indication: PRODUCT USED FOR UNKNOWN INDICATION
     Dates: start: 2010
  13. TENORMIN [Suspect]
     Active Substance: ATENOLOL
     Indication: PRODUCT USED FOR UNKNOWN INDICATION
     Dosage: (BATCH NUMBERS: 60031312 AND 60035257) (EXPIRATION DATES: FEB?2021 AND DEC?2021)
     Route: 048
     Dates: start: 201912, end: 20200202

REACTIONS (8)
  - Depression [Unknown]
  - Lethargy [Unknown]
  - Hypotension [Recovered/Resolved]
  - Vertigo [Unknown]
  - Hypoacusis [Unknown]
  - Visual impairment [Unknown]
  - Fatigue [Unknown]
  - Suspected counterfeit product [Recovered/Resolved]

NARRATIVE: CASE EVENT DATE: 201912
